FAERS Safety Report 8199396-7 (Version None)
Quarter: 2012Q1

REPORT INFORMATION
  Report Type: 
  Country: None (occurrence: None)
  Receive Date: 20120309
  Receipt Date: 20120228
  Transmission Date: 20120608
  Serious: Yes (Hospitalization)
  Sender: FDA-Public Use
  Company Number: FR-ROCHE-1044158

PATIENT
  Age: 57 Year
  Sex: Male
  Weight: 78 kg

DRUGS (3)
  1. ACTEMRA [Suspect]
     Dosage: DATE OF MOST RECENT DOSE PRIOR TO SAE, 15 JUN 2011
     Route: 042
     Dates: start: 20110121
  2. ACTEMRA [Suspect]
     Indication: RHEUMATOID ARTHRITIS
     Dosage: DATE OF MOST RECENT DOSE PRIOR TO SAE, 08 JUN 2011
     Route: 058
     Dates: start: 20110121
  3. ACTEMRA [Suspect]
     Indication: RHEUMATOID ARTHRITIS
     Dosage: DATE OF MOST RECENT DOSE PRIOR TO SAE, 15 FEB 2012
     Route: 058
     Dates: start: 20110708

REACTIONS (1)
  - CHILLBLAINS [None]
